FAERS Safety Report 4577313-6 (Version None)
Quarter: 2005Q1

REPORT INFORMATION
  Report Type: 
  Country: None (occurrence: None)
  Receive Date: 20050131
  Receipt Date: 20050121
  Transmission Date: 20050727
  Serious: Yes (Hospitalization)
  Sender: FDA-Public Use
  Company Number: 040818-0000410

PATIENT
  Age: 50 Year
  Sex: Female
  Weight: 65.7716 kg

DRUGS (17)
  1. PANHEMATIN [Suspect]
     Indication: PORPHYRIA ACUTE
     Dosage: 150 MG, BID; IV
     Route: 042
     Dates: start: 20040601, end: 20040601
  2. PANHEMATIN [Suspect]
     Route: 042
  3. ALBUMIN (HUMAN) [Suspect]
     Indication: PORPHYRIA ACUTE
     Dosage: 5 ML; IV
     Route: 042
     Dates: start: 20040601, end: 20040601
  4. ALBUMIN (HUMAN) [Suspect]
  5. ALBUMIN (HUMAN) [Suspect]
  6. ALBUMIN (HUMAN) [Suspect]
  7. ALBUMIN (HUMAN) [Suspect]
  8. KYTRIL [Concomitant]
  9. TENEX [Concomitant]
  10. FOSAMAX [Concomitant]
  11. WARFARIN SODIUM [Concomitant]
  12. CALCIUM CARBONATE [Concomitant]
  13. SENOKOT [Concomitant]
  14. COLACE [Concomitant]
  15. DEXTROSE INFUSION FLUID 5% (GLUCOSE) [Concomitant]
  16. HEPARIN FLUSH (UNKNOWN) [Concomitant]
  17. DARVOCET-N (PARACETAMOL/DEXTROPROPOXYPHENE) [Concomitant]

REACTIONS (4)
  - DISSEMINATED INTRAVASCULAR COAGULATION [None]
  - HYPOTENSION [None]
  - INFUSION RELATED REACTION [None]
  - STENOTROPHOMONAS SEPSIS [None]
